FAERS Safety Report 5353814-8 (Version None)
Quarter: 2007Q2

REPORT INFORMATION
  Report Type: 
  Country: None (occurrence: None)
  Receive Date: 20070612
  Receipt Date: 20070608
  Transmission Date: 20071010
  Serious: Yes (Hospitalization)
  Sender: FDA-Public Use
  Company Number: SE-BRISTOL-MYERS SQUIBB COMPANY-13770771

PATIENT
  Age: 76 Year
  Sex: Male
  Weight: 84 kg

DRUGS (10)
  1. IRBESARTAN [Suspect]
     Indication: HYPERTENSION
     Dates: start: 20041215
  2. BLINDED: PLACEBO [Suspect]
     Indication: HYPERTENSION
     Dates: start: 20041215
  3. CLOPIDOGREL BISULFATE [Suspect]
     Indication: PROPHYLAXIS
     Dates: start: 20041215
  4. ASPIRIN [Suspect]
     Indication: PROPHYLAXIS
     Dates: start: 20041215
  5. DIGOXIN [Suspect]
     Indication: CARDIAC FAILURE
     Dates: start: 19961218
  6. DIGOXIN [Suspect]
     Indication: ATRIAL FIBRILLATION
     Dates: start: 19961218
  7. SPIRONOLACTONE [Concomitant]
  8. RAMIPRIL [Concomitant]
  9. FURIX [Concomitant]
  10. EMCONCOR [Concomitant]

REACTIONS (1)
  - THERAPEUTIC AGENT TOXICITY [None]
